FAERS Safety Report 12356407 (Version 2)
Quarter: 2017Q1

REPORT INFORMATION
  Report Type: Spontaneous
  Country: US (occurrence: US)
  Receive Date: 20160511
  Receipt Date: 20170224
  Transmission Date: 20170428
  Serious: Yes (Other)
  Sender: FDA-Public Use
  Company Number: US-ELI_LILLY_AND_COMPANY-US201605000565

PATIENT
  Sex: Female

DRUGS (3)
  1. CYMBALTA [Suspect]
     Active Substance: DULOXETINE HYDROCHLORIDE
     Indication: PAIN
     Dosage: 50 MG, BID
     Route: 048
  2. CYMBALTA [Suspect]
     Active Substance: DULOXETINE HYDROCHLORIDE
     Indication: POLYNEUROPATHY
  3. CYMBALTA [Suspect]
     Active Substance: DULOXETINE HYDROCHLORIDE
     Indication: DEPRESSION

REACTIONS (15)
  - Agitation [Unknown]
  - Migraine [Unknown]
  - Aggression [Unknown]
  - Headache [Unknown]
  - Disturbance in attention [Unknown]
  - Anger [Unknown]
  - Hyperhidrosis [Unknown]
  - Memory impairment [Unknown]
  - Suicidal ideation [Unknown]
  - Insomnia [Unknown]
  - Dysphoria [Unknown]
  - Drug withdrawal syndrome [Unknown]
  - Irritability [Unknown]
  - Affect lability [Unknown]
  - Paraesthesia [Unknown]
